FAERS Safety Report 6124649-3 (Version None)
Quarter: 2009Q1

REPORT INFORMATION
  Report Type: 
  Country: None (occurrence: None)
  Receive Date: 20090319
  Receipt Date: 20090313
  Transmission Date: 20090719
  Serious: Yes (Other)
  Sender: FDA-Public Use
  Company Number: B0564909A

PATIENT
  Age: 90 Year
  Sex: Female

DRUGS (1)
  1. PAXIL [Suspect]
     Indication: DRUG USE FOR UNKNOWN INDICATION
     Route: 048
     Dates: start: 20081001

REACTIONS (5)
  - CONVULSION [None]
  - DELIRIUM [None]
  - PSYCHIATRIC SYMPTOM [None]
  - SEROTONIN SYNDROME [None]
  - TREMOR [None]
